FAERS Safety Report 6298797-1 (Version None)
Quarter: 2009Q3

REPORT INFORMATION
  Report Type: 
  Country: None (occurrence: None)
  Receive Date: 20090806
  Receipt Date: 20070604
  Transmission Date: 20100115
  Serious: Yes (Other)
  Sender: FDA-Public Use
  Company Number: US-ASTRAZENECA-2006UW07581

PATIENT
  Age: 31 Year
  Sex: Male
  Weight: 111.6 kg

DRUGS (33)
  1. SEROQUEL [Suspect]
     Indication: SCHIZOPHRENIA
     Dosage: DOSE -  25 MG, TOTAL DAILY DOSE - 25 MG
     Route: 048
     Dates: start: 19971101, end: 19980101
  2. SEROQUEL [Suspect]
     Indication: BIPOLAR DISORDER
     Dosage: DOSE -  25 MG, TOTAL DAILY DOSE - 25 MG
     Route: 048
     Dates: start: 19971101, end: 19980101
  3. SEROQUEL [Suspect]
     Route: 048
     Dates: start: 20030624
  4. SEROQUEL [Suspect]
     Route: 048
     Dates: start: 20030624
  5. CLOZARIL [Concomitant]
     Dates: start: 19940101, end: 19960101
  6. GEODON [Concomitant]
     Dates: start: 20030101
  7. NAVANE [Concomitant]
     Dates: start: 19920101
  8. RISPERDAL [Concomitant]
     Dates: start: 20020101, end: 20030101
  9. THORAZINE [Concomitant]
     Dates: start: 19920101
  10. THORAZINE [Concomitant]
     Dates: start: 20021119
  11. TRILAFON [Concomitant]
     Dates: start: 19920101
  12. ZYPREXA [Concomitant]
     Dates: start: 20020101, end: 20030101
  13. UNSPECIFIED [Concomitant]
  14. NEURONTIN [Concomitant]
     Indication: AFFECTIVE DISORDER
     Dosage: 600 - 3200 MG DAILY
     Dates: start: 20021119
  15. DEPAKOTE [Concomitant]
     Indication: CONVULSION
     Dates: start: 19971029
  16. ARTANE [Concomitant]
     Dates: start: 19971029
  17. CELEXA [Concomitant]
     Dates: start: 20021119
  18. MIRAPEX [Concomitant]
     Indication: RESTLESS LEGS SYNDROME
     Dates: start: 20021119
  19. SYNTHROID [Concomitant]
     Dates: start: 20021119
  20. BUSPAR [Concomitant]
     Dates: start: 20021119
  21. PEPCID [Concomitant]
     Dates: start: 20021119
  22. LOPRESSOR [Concomitant]
     Dates: start: 20021119
  23. ATIVAN [Concomitant]
     Route: 048
     Dates: start: 20021119
  24. KLONOPIN [Concomitant]
     Dosage: 0.5 - 1.5 MG DAILY
     Route: 048
     Dates: start: 19971029
  25. RESTORIL [Concomitant]
     Indication: INSOMNIA
     Route: 048
     Dates: start: 20021119
  26. TOPAMAX [Concomitant]
     Indication: MIGRAINE
     Dosage: 25 - 50 MG DAILY
     Route: 048
     Dates: start: 20021119
  27. IMITREX [Concomitant]
     Indication: MIGRAINE
     Route: 048
     Dates: start: 20021119
  28. REMANIL [Concomitant]
     Indication: AMNESIA
     Dates: start: 20030624
  29. HYDROXYZ PAM [Concomitant]
     Dates: start: 20050222
  30. ABILIFY [Concomitant]
     Dates: start: 20050222
  31. STRATTERA [Concomitant]
     Dates: start: 20050302
  32. MIRTAZAPINE [Concomitant]
     Dates: start: 20050307
  33. NEXIUM [Concomitant]
     Dates: start: 20030919

REACTIONS (13)
  - ANGIOPATHY [None]
  - BLOOD CHOLESTEROL INCREASED [None]
  - BRAIN OPERATION [None]
  - DEPRESSION [None]
  - DIABETES MELLITUS [None]
  - EPILEPSY [None]
  - INTERMITTENT EXPLOSIVE DISORDER [None]
  - LUNG DISORDER [None]
  - MUSCULOSKELETAL PAIN [None]
  - OBSESSIVE-COMPULSIVE DISORDER [None]
  - OPTIC NEUROPATHY [None]
  - PAPILLOEDEMA [None]
  - TARDIVE DYSKINESIA [None]
